FAERS Safety Report 4985705-6 (Version None)
Quarter: 2006Q2

REPORT INFORMATION
  Report Type: 
  Country: None (occurrence: None)
  Receive Date: 20060421
  Receipt Date: 20060412
  Transmission Date: 20061013
  Serious: Yes (Other)
  Sender: FDA-Public Use
  Company Number: OSCN-NO-0604L-0089

PATIENT
  Age: 53 Year
  Sex: Male

DRUGS (2)
  1. OMNISCAN [Suspect]
     Indication: DRUG USE FOR UNKNOWN INDICATION
     Dosage: SINGLE DOSE, I.V.
     Route: 042
  2. ANGIOTENSIN COVERTING ENZYME (ACE) INHIBITORS [Concomitant]

REACTIONS (4)
  - CONJUNCTIVAL HYPERAEMIA [None]
  - NEPHROGENIC FIBROSING DERMOPATHY [None]
  - OCULAR ICTERUS [None]
  - PAIN [None]
